FAERS Safety Report 8536881-X (Version None)
Quarter: 2012Q3

REPORT INFORMATION
  Report Type: 
  Country: None (occurrence: None)
  Receive Date: 20120725
  Receipt Date: 20120723
  Transmission Date: 20120928
  Serious: Yes (Other)
  Sender: FDA-Public Use
  Company Number: US-PFIZER INC-2012177814

PATIENT
  Sex: Female

DRUGS (1)
  1. VISTARIL [Suspect]
     Dosage: 50 MG, 2X/DAY
     Route: 048

REACTIONS (4)
  - BIPOLAR DISORDER [None]
  - DEPRESSION [None]
  - ANGER [None]
  - ANXIETY [None]
